FAERS Safety Report 23976863 (Version 1)
Quarter: 2024Q2

REPORT INFORMATION
  Report Type: Report from Study
  Country: CA (occurrence: None)
  Receive Date: 20240614
  Receipt Date: 20240614
  Transmission Date: 20240716
  Serious: Yes (Other)
  Sender: FDA-Public Use
  Company Number: 2024A133812

PATIENT
  Sex: Female

DRUGS (1)
  1. TEZSPIRE [Suspect]
     Active Substance: TEZEPELUMAB-EKKO
     Indication: Asthma
     Dosage: 210.0MG UNKNOWN
     Route: 058
     Dates: start: 20230823, end: 20240529

REACTIONS (6)
  - Myalgia [Unknown]
  - Balance disorder [Unknown]
  - Fall [Unknown]
  - Rib fracture [Unknown]
  - Muscle spasms [Unknown]
  - Arthralgia [Unknown]
